FAERS Safety Report 18664577 (Version 4)
Quarter: 2021Q3

REPORT INFORMATION
  Report Type: Spontaneous
  Country: GB (occurrence: GB)
  Receive Date: 20201225
  Receipt Date: 20210818
  Transmission Date: 20211014
  Serious: Yes (Other)
  Sender: FDA-Public Use
  Company Number: GB-BIOVITRUM-2020GB7888

PATIENT
  Age: 53 Year
  Sex: Male

DRUGS (44)
  1. IBUPROFEN. [Concomitant]
     Active Substance: IBUPROFEN
     Dates: start: 2016
  2. OMEPRAZOLE. [Concomitant]
     Active Substance: OMEPRAZOLE
     Dates: start: 2015
  3. OMEPRAZOLE. [Concomitant]
     Active Substance: OMEPRAZOLE
     Dates: start: 2019
  4. ACYCLOVIR. [Concomitant]
     Active Substance: ACYCLOVIR
     Dates: start: 2016
  5. ACYCLOVIR. [Concomitant]
     Active Substance: ACYCLOVIR
     Dates: start: 2020
  6. CALCIUM CARBONATE. [Concomitant]
     Active Substance: CALCIUM CARBONATE
     Dates: start: 2020
  7. AMITRIPTYLINE [Concomitant]
     Active Substance: AMITRIPTYLINE
     Dates: start: 2014
  8. AMITRIPTYLINE [Concomitant]
     Active Substance: AMITRIPTYLINE
     Dates: start: 2016
  9. AMITRIPTYLINE [Concomitant]
     Active Substance: AMITRIPTYLINE
     Dates: start: 2018
  10. SIMVASTATIN. [Concomitant]
     Active Substance: SIMVASTATIN
     Dates: start: 2016
  11. OMEPRAZOLE. [Concomitant]
     Active Substance: OMEPRAZOLE
     Dates: start: 2016
  12. OMEPRAZOLE. [Concomitant]
     Active Substance: OMEPRAZOLE
     Dates: start: 2017
  13. OMEPRAZOLE. [Concomitant]
     Active Substance: OMEPRAZOLE
     Dates: start: 2018
  14. ACYCLOVIR. [Concomitant]
     Active Substance: ACYCLOVIR
     Dates: start: 2018
  15. PARACETAMOL [Concomitant]
     Active Substance: ACETAMINOPHEN
     Dates: start: 2016
  16. ALENDRONIC [Concomitant]
     Active Substance: ALENDRONIC ACID
  17. MEZOLAR MATRIX [Concomitant]
     Active Substance: FENTANYL
  18. IBUPROFEN. [Concomitant]
     Active Substance: IBUPROFEN
     Dates: start: 2014
  19. IBUPROFEN. [Concomitant]
     Active Substance: IBUPROFEN
     Dates: start: 2020
  20. PARACETAMOL [Concomitant]
     Active Substance: ACETAMINOPHEN
     Dates: start: 2018
  21. PARACETAMOL [Concomitant]
     Active Substance: ACETAMINOPHEN
     Dates: start: 2019
  22. DUROGESIC [Concomitant]
     Active Substance: FENTANYL
     Dates: start: 2014
  23. SIMVASTATIN. [Concomitant]
     Active Substance: SIMVASTATIN
     Dates: start: 2018
  24. CETIRIZINE [Concomitant]
     Active Substance: CETIRIZINE HYDROCHLORIDE
     Dates: start: 2015
  25. ORFADIN [Suspect]
     Active Substance: NITISINONE
     Indication: ALKAPTONURIA
     Dates: start: 2014
  26. TRAMADOL. [Concomitant]
     Active Substance: TRAMADOL
     Dates: start: 2018
  27. AMITRIPTYLINE [Concomitant]
     Active Substance: AMITRIPTYLINE
     Dates: start: 2020
  28. ACYCLOVIR. [Concomitant]
     Active Substance: ACYCLOVIR
     Dates: start: 2015
  29. ACYCLOVIR. [Concomitant]
     Active Substance: ACYCLOVIR
     Dates: start: 2017
  30. FENTANYL. [Concomitant]
     Active Substance: FENTANYL
  31. IBUPROFEN. [Concomitant]
     Active Substance: IBUPROFEN
     Dates: start: 2017
  32. IBUPROFEN. [Concomitant]
     Active Substance: IBUPROFEN
     Dates: start: 2018
  33. SIMVASTATIN. [Concomitant]
     Active Substance: SIMVASTATIN
     Dates: start: 2014
  34. PARACETAMOL [Concomitant]
     Active Substance: ACETAMINOPHEN
     Dates: start: 2017
  35. NEURONTIN [Concomitant]
     Active Substance: GABAPENTIN
  36. DUROGESIC [Concomitant]
     Active Substance: FENTANYL
     Dosage: PATCHES
     Dates: start: 2016
  37. IBUPROFEN. [Concomitant]
     Active Substance: IBUPROFEN
     Dates: start: 2019
  38. TRAMADOL. [Concomitant]
     Active Substance: TRAMADOL
     Dates: start: 2014
  39. OMEPRAZOLE. [Concomitant]
     Active Substance: OMEPRAZOLE
     Dates: start: 2020
  40. ACYCLOVIR. [Concomitant]
     Active Substance: ACYCLOVIR
     Dates: start: 2019
  41. PARACETAMOL [Concomitant]
     Active Substance: ACETAMINOPHEN
     Dates: start: 2020
  42. TRAMADOL. [Concomitant]
     Active Substance: TRAMADOL
     Dates: start: 2017
  43. AMITRIPTYLINE [Concomitant]
     Active Substance: AMITRIPTYLINE
     Dates: start: 2017
  44. SIMVASTATIN. [Concomitant]
     Active Substance: SIMVASTATIN
     Dates: start: 2017

REACTIONS (3)
  - Cataract [Not Recovered/Not Resolved]
  - Lenticular opacities [Not Recovered/Not Resolved]
  - Amino acid level increased [Not Recovered/Not Resolved]

NARRATIVE: CASE EVENT DATE: 2015
